FAERS Safety Report 21234237 (Version 1)
Quarter: 2022Q3

REPORT INFORMATION
  Report Type: Spontaneous
  Country: CN (occurrence: CN)
  Receive Date: 20220819
  Receipt Date: 20220819
  Transmission Date: 20221027
  Serious: Yes (Other)
  Sender: FDA-Public Use
  Company Number: CN-009507513-2208CHN006333

PATIENT
  Age: 57 Year
  Sex: Female
  Weight: 60 kg

DRUGS (2)
  1. CILASTATIN SODIUM\IMIPENEM [Suspect]
     Active Substance: CILASTATIN SODIUM\IMIPENEM
     Indication: Anti-infective therapy
     Dosage: 1 G, 4 TIMES IN A DAY
     Route: 041
     Dates: start: 20220806, end: 20220809
  2. VANCOMYCIN [Suspect]
     Active Substance: VANCOMYCIN
     Indication: Anti-infective therapy
     Dosage: 1 G, Q12H (BID)
     Route: 041
     Dates: start: 20220806, end: 20220809

REACTIONS (5)
  - Abdominal abscess [Unknown]
  - Hypokalaemia [Unknown]
  - Blood test abnormal [Unknown]
  - Hyperglycaemia [Unknown]
  - Pyrexia [Recovering/Resolving]

NARRATIVE: CASE EVENT DATE: 20220801
